FAERS Safety Report 6214793-4 (Version None)
Quarter: 2009Q2

REPORT INFORMATION
  Report Type: 
  Country: None (occurrence: None)
  Receive Date: 20090604
  Receipt Date: 20090528
  Transmission Date: 20091009
  Serious: Yes (Hospitalization)
  Sender: FDA-Public Use
  Company Number: A0788617A

PATIENT
  Sex: Male

DRUGS (4)
  1. SERETIDE [Suspect]
     Indication: ASTHMA
     Dosage: 1PUFF THREE TIMES PER DAY
     Route: 055
     Dates: start: 20030101, end: 20040101
  2. AEROLIN [Concomitant]
     Dosage: 1PUFF TWICE PER DAY
     Route: 055
     Dates: start: 20030101, end: 20040101
  3. BEROTEC [Concomitant]
     Dosage: 5DROP PER DAY
     Route: 055
     Dates: start: 20030101, end: 20040101
  4. ATROVENT [Concomitant]
     Dosage: 10DROP PER DAY
     Route: 055

REACTIONS (3)
  - ASTHMA [None]
  - DRUG ADMINISTRATION ERROR [None]
  - DRUG INEFFECTIVE [None]
